FAERS Safety Report 19762153 (Version 3)
Quarter: 2021Q4

REPORT INFORMATION
  Report Type: Report from Study
  Country: US (occurrence: US)
  Receive Date: 20210830
  Receipt Date: 20211021
  Transmission Date: 20220303
  Serious: No
  Sender: FDA-Public Use
  Company Number: NVSC2021US195553

PATIENT
  Sex: Female

DRUGS (1)
  1. ENTRESTO [Suspect]
     Active Substance: SACUBITRIL\VALSARTAN
     Indication: Product used for unknown indication
     Dosage: UNK UNK, BID
     Route: 048

REACTIONS (7)
  - Localised oedema [Recovering/Resolving]
  - Dyspnoea [Not Recovered/Not Resolved]
  - Oedema peripheral [Recovering/Resolving]
  - Weight decreased [Recovering/Resolving]
  - Oxygen saturation decreased [Unknown]
  - Prohormone brain natriuretic peptide abnormal [Not Recovered/Not Resolved]
  - Pruritus [Not Recovered/Not Resolved]
